FAERS Safety Report 8352644-2 (Version None)
Quarter: 2012Q2

REPORT INFORMATION
  Report Type: 
  Country: None (occurrence: None)
  Receive Date: 20120509
  Receipt Date: 20120502
  Transmission Date: 20120825
  Serious: Yes (Other)
  Sender: FDA-Public Use
  Company Number: WAES 1205USA00737

PATIENT
  Age: 72 Year
  Sex: Female

DRUGS (3)
  1. DECADRON [Suspect]
     Indication: MULTIPLE MYELOMA
     Dosage: 40;12;20 MG/PO
     Route: 048
     Dates: end: 20100301
  2. DECADRON [Suspect]
     Indication: MULTIPLE MYELOMA
     Dosage: 40;12;20 MG/PO
     Route: 048
     Dates: start: 20040601
  3. LENALIDOMIDE [Suspect]
     Dosage: 15;25 MG
     Dates: start: 20100301

REACTIONS (14)
  - MUSCULAR WEAKNESS [None]
  - TOXICITY TO VARIOUS AGENTS [None]
  - BONE PAIN [None]
  - OEDEMA PERIPHERAL [None]
  - DECREASED APPETITE [None]
  - DERMATITIS BULLOUS [None]
  - POLYURIA [None]
  - DIARRHOEA [None]
  - HYPERTENSION [None]
  - LEUKOPENIA [None]
  - SPINAL FRACTURE [None]
  - NEUTROPENIA [None]
  - VISUAL IMPAIRMENT [None]
  - CONSTIPATION [None]
